FAERS Safety Report 9928014 (Version 2)
Quarter: 2014Q1

REPORT INFORMATION
  Report Type: Spontaneous
  Country: GB (occurrence: GB)
  Receive Date: 20140227
  Receipt Date: 20140227
  Transmission Date: 20141002
  Serious: Yes (Other)
  Sender: FDA-Public Use
  Company Number: GB-JNJFOC-20140115947

PATIENT
  Age: 63 Year
  Sex: Female

DRUGS (3)
  1. IMODIUM INSTANTS [Suspect]
     Indication: ABDOMINAL DISCOMFORT
     Dosage: 1 ON THE FIRST DAY
     Route: 048
  2. IMODIUM INSTANTS [Suspect]
     Indication: ABDOMINAL DISCOMFORT
     Dosage: 2 ON THE SECOND DAY
     Route: 048
  3. IMODIUM INSTANTS [Suspect]
     Indication: ABDOMINAL DISCOMFORT
     Route: 048

REACTIONS (4)
  - Herpes zoster [Unknown]
  - Rash [Recovered/Resolved]
  - Pruritus [Recovered/Resolved]
  - Urticaria [Recovered/Resolved]
